FAERS Safety Report 5862099-5 (Version None)
Quarter: 2008Q3

REPORT INFORMATION
  Report Type: 
  Country: None (occurrence: None)
  Receive Date: 20080827
  Receipt Date: 20080827
  Transmission Date: 20090109
  Serious: No
  Sender: FDA-Public Use
  Company Number: None

PATIENT
  Age: 51 Year
  Sex: Female

DRUGS (6)
  1. LEVAQUIN [Suspect]
     Dates: start: 20060531, end: 20060602
  2. ZITHROMAX [Concomitant]
  3. EFFEXOR [Concomitant]
  4. CLARITIN-D [Concomitant]
  5. FLONASE [Concomitant]
  6. TRAZODONE HCL [Concomitant]

REACTIONS (6)
  - CHROMATURIA [None]
  - HEADACHE [None]
  - HEPATITIS ACUTE [None]
  - HEPATITIS C [None]
  - MICTURITION URGENCY [None]
  - POLLAKIURIA [None]
